FAERS Safety Report 5266749-6 (Version None)
Quarter: 2007Q1

REPORT INFORMATION
  Report Type: 
  Country: None (occurrence: None)
  Receive Date: 20070308
  Receipt Date: 20070301
  Transmission Date: 20070707
  Serious: Yes (Other)
  Sender: FDA-Public Use
  Company Number: 2007309607

PATIENT
  Age: 24 Year
  Sex: Male
  Weight: 68 kg

DRUGS (1)
  1. ROGAINE [Suspect]
     Indication: ALOPECIA
     Dosage: 1 ML TWICE PER DAY (1 ML, 2 IN 1 D), TOPICAL
     Route: 061
     Dates: start: 20010101

REACTIONS (2)
  - DRUG DEPENDENCE [None]
  - NAIL DISCOLOURATION [None]
